FAERS Safety Report 5815706-7 (Version None)
Quarter: 2008Q3

REPORT INFORMATION
  Report Type: 
  Country: None (occurrence: None)
  Receive Date: 20080721
  Receipt Date: 20080714
  Transmission Date: 20090109
  Serious: Yes (Other)
  Sender: FDA-Public Use
  Company Number: DE-ELI_LILLY_AND_COMPANY-DE200807002770

PATIENT
  Age: 54 Year
  Sex: Male

DRUGS (1)
  1. ZYPREXA [Suspect]
     Dosage: 7.5 MG, DAILY (1/D)
     Route: 048

REACTIONS (5)
  - ARRHYTHMIA [None]
  - CEREBRAL INFARCTION [None]
  - DIABETES MELLITUS [None]
  - EMBOLISM [None]
  - HEMIPARESIS [None]
